FAERS Safety Report 9052504 (Version 3)
Quarter: 2013Q2

REPORT INFORMATION
  Report Type: Spontaneous
  Country: GB (occurrence: GB)
  Receive Date: 20130207
  Receipt Date: 20130502
  Transmission Date: 20140414
  Serious: Yes (Death, Hospitalization)
  Sender: FDA-Public Use
  Company Number: PHFR2013GB001061

PATIENT
  Sex: Female

DRUGS (2)
  1. CLOZARIL [Suspect]
     Indication: SCHIZOPHRENIA
     Dosage: UNK
     Route: 048
     Dates: start: 20090728
  2. CLOZARIL [Suspect]
     Dosage: 125 MG, DAILY DOSE
     Route: 048

REACTIONS (4)
  - Cardiac arrest [Fatal]
  - Chronic obstructive pulmonary disease [Fatal]
  - Respiratory failure [Unknown]
  - Schizophrenia [Unknown]
